FAERS Safety Report 9262113 (Version 2)
Quarter: 2013Q3

REPORT INFORMATION
  Report Type: Report from Study
  Country: FR (occurrence: FR)
  Receive Date: 20130430
  Receipt Date: 20130716
  Transmission Date: 20140515
  Serious: Yes (Other)
  Sender: FDA-Public Use
  Company Number: FR-AMGEN-FRACT2013029152

PATIENT
  Age: 71 Year
  Sex: Female

DRUGS (10)
  1. ETANERCEPT [Suspect]
     Indication: RHEUMATOID ARTHRITIS
     Dosage: 50 MG, QWK
     Route: 065
     Dates: start: 200712, end: 200804
  2. ETANERCEPT [Suspect]
     Dosage: 50 MG, QWK
     Route: 065
     Dates: end: 200906
  3. ETANERCEPT [Suspect]
     Dosage: 50 MG, QWK
     Route: 065
     Dates: end: 201007
  4. ETANERCEPT [Suspect]
     Dosage: 50 MG, QWK
     Route: 065
     Dates: start: 201007, end: 201102
  5. METHOTREXATE [Concomitant]
     Dosage: 12.5 MG, WEEKLY
     Dates: start: 200105, end: 200812
  6. METHOTREXATE [Concomitant]
     Dosage: 15 MG, WEEKLY
     Dates: start: 200812, end: 200907
  7. METHOTREXATE [Concomitant]
     Dosage: 17.5 MG, WEEKLY
     Dates: start: 200907, end: 201007
  8. METHOTREXATE [Concomitant]
     Dosage: 20 MG, WEEKLY
     Dates: start: 201007, end: 201102
  9. PREDNISONE [Concomitant]
     Dosage: 7 MG, 1X/DAY
     Dates: start: 200012, end: 200605
  10. PREDNISONE [Concomitant]
     Dosage: 5 MG, 1X/DAY
     Dates: start: 200605, end: 200611

REACTIONS (2)
  - Dacryocystitis [Recovered/Resolved]
  - Gastrointestinal fungal infection [Recovered/Resolved]
